FAERS Safety Report 13464439 (Version 1)
Quarter: 2017Q2

REPORT INFORMATION
  Report Type: Spontaneous
  Country: US (occurrence: US)
  Receive Date: 20170420
  Receipt Date: 20170420
  Transmission Date: 20170830
  Serious: Yes (Other)
  Sender: FDA-Public Use
  Company Number: US-ROCHE-649303

PATIENT
  Age: 19 Year
  Sex: Male
  Weight: 77.1 kg

DRUGS (2)
  1. ACCUTANE [Suspect]
     Active Substance: ISOTRETINOIN
     Indication: ACNE
     Route: 048
  2. ACCUTANE [Suspect]
     Active Substance: ISOTRETINOIN
     Dosage: FREQUENCY: DAILY
     Route: 048
     Dates: start: 20021022, end: 20030114

REACTIONS (9)
  - Onycholysis [Unknown]
  - Inflammatory bowel disease [Unknown]
  - Large intestinal ulcer [Unknown]
  - Blood cholesterol increased [Unknown]
  - Dry skin [Unknown]
  - Crohn^s disease [Unknown]
  - Proctitis [Unknown]
  - Depression [Unknown]
  - Cheilitis [Unknown]

NARRATIVE: CASE EVENT DATE: 20020917
